FAERS Safety Report 16213649 (Version 1)
Quarter: 2019Q2

REPORT INFORMATION
  Report Type: Spontaneous
  Country: US (occurrence: US)
  Receive Date: 20190418
  Receipt Date: 20190418
  Transmission Date: 20190711
  Serious: Yes (Hospitalization)
  Sender: FDA-Public Use
  Company Number: US-UNICHEM PHARMACEUTICALS (USA) INC-UCM201904-000134

PATIENT
  Age: 32 Year
  Sex: Female

DRUGS (1)
  1. TIZANIDINE. [Suspect]
     Active Substance: TIZANIDINE
     Dosage: 20 AND 30 TABLETS OF 4MG TIZANIDINE (TOTALING 80-120 MG)

REACTIONS (3)
  - Overdose [Recovered/Resolved]
  - Self-medication [Unknown]
  - Shock [Recovered/Resolved]
